FAERS Safety Report 8251913-4 (Version None)
Quarter: 2012Q2

REPORT INFORMATION
  Report Type: 
  Country: None (occurrence: None)
  Receive Date: 20120402
  Receipt Date: 20120319
  Transmission Date: 20120825
  Serious: Yes (Life-Threatening, Hospitalization)
  Sender: FDA-Public Use
  Company Number: GB-BAUSCH-2012BL002011

PATIENT
  Age: 85 Year
  Sex: Female

DRUGS (19)
  1. FUROSEMIDE [Suspect]
     Indication: PRODUCT USED FOR UNKNOWN INDICATION
     Route: 048
  2. SERETIDE ^GLAXO WELLCOME^ [Concomitant]
  3. TIOTROPIUM BROMIDE [Concomitant]
  4. CALCICHEW D3 /UNK/ [Suspect]
     Indication: PRODUCT USED FOR UNKNOWN INDICATION
     Route: 048
  5. BUPRENORPHINE [Concomitant]
     Route: 062
  6. ESOMEPRAZOLE MAGNESIUM [Concomitant]
     Route: 048
  7. MIRTAZAPINE [Concomitant]
     Route: 048
  8. BENDROFLUMETHIAZIDE [Suspect]
     Indication: PRODUCT USED FOR UNKNOWN INDICATION
     Route: 048
  9. ACETAMINOPHEN AND CODEINE PHOSPHATE [Concomitant]
     Route: 048
  10. WARFARIN SODIUM [Concomitant]
     Route: 048
  11. DIGOXIN [Concomitant]
     Route: 048
  12. PREDNISOLONE [Suspect]
     Indication: PRODUCT USED FOR UNKNOWN INDICATION
     Route: 048
  13. MUCODYNE [Concomitant]
     Route: 048
  14. SPIRIVA [Concomitant]
  15. CARBOCISTEINE [Concomitant]
  16. FERSAMAL [Concomitant]
     Route: 048
  17. GLICLAZIDE [Concomitant]
     Route: 048
  18. METFORMIN HCL [Concomitant]
     Route: 048
  19. ALBUTEROL [Concomitant]

REACTIONS (2)
  - METABOLIC ALKALOSIS [None]
  - BLOOD CALCIUM INCREASED [None]
